FAERS Safety Report 7582922-6 (Version None)
Quarter: 2011Q2

REPORT INFORMATION
  Report Type: 
  Country: None (occurrence: None)
  Receive Date: 20110627
  Receipt Date: 20110627
  Transmission Date: 20111010
  Serious: Yes (Other)
  Sender: FDA-Public Use
  Company Number: None

PATIENT
  Age: 68 Year
  Sex: Female
  Weight: 56.6996 kg

DRUGS (1)
  1. ADENOSINE [Suspect]
     Dosage: 6XIAM ONCE IV
     Route: 042

REACTIONS (4)
  - MALAISE [None]
  - BLOOD GLUCOSE DECREASED [None]
  - CRYING [None]
  - AMNESIA [None]
